FAERS Safety Report 16203650 (Version 2)
Quarter: 2019Q2

REPORT INFORMATION
  Report Type: Spontaneous
  Country: FR (occurrence: FR)
  Receive Date: 20190416
  Receipt Date: 20190419
  Transmission Date: 20190711
  Serious: Yes (Death, Hospitalization, Other)
  Sender: FDA-Public Use
  Company Number: FR-OTSUKA-2019_012028

PATIENT
  Age: 42 Year
  Sex: Male

DRUGS (3)
  1. CANNABIS [Suspect]
     Active Substance: CANNABIS SATIVA SUBSP. INDICA TOP
     Indication: PRODUCT USED FOR UNKNOWN INDICATION
     Dosage: UNK
     Route: 065
  2. ABILIFY MAINTENA [Suspect]
     Active Substance: ARIPIPRAZOLE
     Indication: SCHIZOPHRENIA
     Dosage: 400 MG, QM (EVERY 28 DAYS)
     Route: 030
     Dates: end: 20190304
  3. COCAINE [Suspect]
     Active Substance: COCAINE
     Indication: PRODUCT USED FOR UNKNOWN INDICATION
     Dosage: UNK
     Route: 065

REACTIONS (16)
  - Diabetes insipidus [Unknown]
  - Cardiogenic shock [Unknown]
  - Pneumonia aspiration [Unknown]
  - Blood potassium increased [Unknown]
  - Cerebral ischaemia [Unknown]
  - Blood calcium decreased [Unknown]
  - Intracranial aneurysm [Fatal]
  - Hyperlactacidaemia [Unknown]
  - Aspartate aminotransferase increased [Unknown]
  - Subarachnoid haemorrhage [Fatal]
  - Status epilepticus [Unknown]
  - Intraventricular haemorrhage [Unknown]
  - Hydrocephalus [Unknown]
  - Aneurysm ruptured [Fatal]
  - Coma [Unknown]
  - Stress cardiomyopathy [Unknown]

NARRATIVE: CASE EVENT DATE: 20190304
